FAERS Safety Report 10641640 (Version 2)
Quarter: 2014Q4

REPORT INFORMATION
  Report Type: Spontaneous
  Country: JP (occurrence: JP)
  Receive Date: 20141209
  Receipt Date: 20141216
  Transmission Date: 20150529
  Serious: Yes (Hospitalization)
  Sender: FDA-Public Use
  Company Number: JP-PFIZER INC-2014331085

PATIENT
  Age: 40 Year
  Sex: Female

DRUGS (2)
  1. PENICILLIN G POTASSIUM. [Suspect]
     Active Substance: PENICILLIN G POTASSIUM
     Indication: STREPTOCOCCAL INFECTION
     Dosage: UNK
  2. DALACIN [Suspect]
     Active Substance: CLINDAMYCIN\CLINDAMYCIN PHOSPHATE
     Indication: STREPTOCOCCAL INFECTION
     Dosage: UNK

REACTIONS (3)
  - Lung disorder [Unknown]
  - Pyrexia [Unknown]
  - Rash [Unknown]
